FAERS Safety Report 8572142-0 (Version None)
Quarter: 2012Q3

REPORT INFORMATION
  Report Type: 
  Country: None (occurrence: None)
  Receive Date: 20120806
  Receipt Date: 20120730
  Transmission Date: 20120928
  Serious: Yes (Other)
  Sender: FDA-Public Use
  Company Number: US-BAYER-2012-076693

PATIENT
  Age: 39 Year
  Sex: Male

DRUGS (1)
  1. CIPROFLOXACIN HCL [Suspect]
     Indication: TESTICULAR DISORDER
     Dosage: UNK
     Route: 048
     Dates: start: 20110922, end: 20110901

REACTIONS (10)
  - NECK PAIN [None]
  - NEURALGIA [None]
  - ABDOMINAL PAIN [None]
  - RASH MACULAR [None]
  - BURNING SENSATION [None]
  - PARAESTHESIA [None]
  - MYALGIA [None]
  - MUSCLE RUPTURE [None]
  - MUSCULOSKELETAL STIFFNESS [None]
  - PAIN [None]
